FAERS Safety Report 7553796-4 (Version None)
Quarter: 2011Q2

REPORT INFORMATION
  Report Type: 
  Country: None (occurrence: None)
  Receive Date: 20110617
  Receipt Date: 20110607
  Transmission Date: 20111010
  Serious: Yes (Death)
  Sender: FDA-Public Use
  Company Number: DK-SANOFI-AVENTIS-2011SA034902

PATIENT
  Age: 71 Year
  Sex: Male

DRUGS (4)
  1. WARFARIN SODIUM [Concomitant]
  2. MULTAQ [Suspect]
     Indication: ATRIAL FIBRILLATION
     Route: 048
     Dates: start: 20100330
  3. METOPROLOL SUCCINATE [Concomitant]
  4. TAMSULOSIN HCL [Concomitant]

REACTIONS (1)
  - SUDDEN DEATH [None]
